FAERS Safety Report 17980835 (Version 1)
Quarter: 2020Q3

REPORT INFORMATION
  Report Type: Spontaneous
  Country: CA (occurrence: CA)
  Receive Date: 20200704
  Receipt Date: 20200704
  Transmission Date: 20201103
  Serious: Yes (Death, Life-Threatening, Hospitalization)
  Sender: FDA-Public Use
  Company Number: CA-B.I. PHARMACEUTICALS,INC./RIDGEFIELD-2020-BI-032908

PATIENT
  Age: 99 Year
  Sex: Female

DRUGS (1)
  1. JARDIANCE [Suspect]
     Active Substance: EMPAGLIFLOZIN
     Indication: PRODUCT USED FOR UNKNOWN INDICATION
     Route: 048

REACTIONS (7)
  - Asthenia [Fatal]
  - Diabetic ketoacidosis [Fatal]
  - Nausea [Fatal]
  - Acute kidney injury [Fatal]
  - Liver function test increased [Fatal]
  - International normalised ratio increased [Fatal]
  - Myocardial ischaemia [Fatal]
